FAERS Safety Report 6665405-7 (Version None)
Quarter: 2010Q2

REPORT INFORMATION
  Report Type: 
  Country: None (occurrence: None)
  Receive Date: 20100402
  Receipt Date: 20100322
  Transmission Date: 20101027
  Serious: Yes (Hospitalization)
  Sender: FDA-Public Use
  Company Number: IT-PFIZER INC-2010036844

PATIENT
  Sex: Female

DRUGS (1)
  1. ALPRAZOLAM [Suspect]

REACTIONS (2)
  - EXPRESSIVE LANGUAGE DISORDER [None]
  - SOPOR [None]
